FAERS Safety Report 16633799 (Version 2)
Quarter: 2020Q2

REPORT INFORMATION
  Report Type: Spontaneous
  Country: IT (occurrence: IT)
  Receive Date: 20190725
  Receipt Date: 20200515
  Transmission Date: 20200713
  Serious: Yes (Hospitalization)
  Sender: FDA-Public Use
  Company Number: IT-ALLERGAN-1929807US

PATIENT
  Sex: Male
  Weight: 28 kg

DRUGS (1)
  1. ESCITALOPRAM OXALATE - BP [Suspect]
     Active Substance: ESCITALOPRAM OXALATE
     Indication: PRODUCT ADMINISTRATION ERROR
     Dosage: 12 GTT
     Route: 048
     Dates: start: 20190624, end: 20190624

REACTIONS (3)
  - Product administered to patient of inappropriate age [Unknown]
  - Medication error [Unknown]
  - Tremor [Recovering/Resolving]

NARRATIVE: CASE EVENT DATE: 20190624
